FAERS Safety Report 9720885 (Version 1)
Quarter: 2013Q4

REPORT INFORMATION
  Report Type: Spontaneous
  Country: FR (occurrence: FR)
  Receive Date: 20131129
  Receipt Date: 20131129
  Transmission Date: 20140711
  Serious: Yes (Hospitalization)
  Sender: FDA-Public Use
  Company Number: FR-SA-2013SA121222

PATIENT
  Age: 91 Year
  Sex: Female

DRUGS (13)
  1. RIFADINE [Suspect]
     Indication: OSTEOMYELITIS
     Route: 048
     Dates: start: 201308, end: 201308
  2. DALACIN [Suspect]
     Indication: OSTEOMYELITIS
     Route: 065
     Dates: start: 201308, end: 201308
  3. SEROPRAM [Suspect]
     Indication: FOOD AVERSION
     Route: 065
     Dates: start: 201308, end: 201308
  4. ORBENINE [Concomitant]
     Indication: HAEMATOMA INFECTION
     Dates: start: 20130616, end: 20130628
  5. ORBENINE [Concomitant]
     Indication: OSTEOMYELITIS
     Dates: start: 20130616, end: 20130628
  6. ORBENINE [Concomitant]
     Indication: HAEMATOMA INFECTION
     Dates: start: 20130629, end: 20130803
  7. ORBENINE [Concomitant]
     Indication: OSTEOMYELITIS
     Dates: start: 20130629, end: 20130803
  8. PYOSTACINE [Concomitant]
     Indication: HAEMATOMA INFECTION
     Dates: start: 20130630, end: 20130712
  9. CALCIPARINE [Concomitant]
     Indication: CARDIOVASCULAR EVENT PROPHYLAXIS
     Dates: start: 20130730
  10. TAVANIC [Concomitant]
     Indication: HAEMATOMA INFECTION
     Dosage: TAKEN TO AUG -2013
     Dates: start: 20130803
  11. TAVANIC [Concomitant]
     Indication: OSTEOMYELITIS
     Dosage: TAKEN TO AUG -2013
     Dates: start: 20130803
  12. ROCEPHINE [Concomitant]
     Indication: HAEMATOMA INFECTION
     Dosage: TAKEN TO : AUG-2013
     Dates: start: 20130803
  13. ROCEPHINE [Concomitant]
     Indication: OSTEOMYELITIS
     Dosage: TAKEN TO : AUG-2013
     Dates: start: 20130803

REACTIONS (3)
  - Thrombocytopenia [Recovered/Resolved with Sequelae]
  - Cholestasis [Recovering/Resolving]
  - Urticaria [Recovered/Resolved]
